FAERS Safety Report 9106412 (Version 1)
Quarter: 2013Q1

REPORT INFORMATION
  Report Type: Spontaneous
  Country: US (occurrence: US)
  Receive Date: 20130221
  Receipt Date: 20130221
  Transmission Date: 20140127
  Serious: No
  Sender: FDA-Public Use
  Company Number: US-PFIZER INC-2013066160

PATIENT
  Age: 56 Year
  Sex: Female
  Weight: 52.15 kg

DRUGS (2)
  1. CHANTIX [Suspect]
     Indication: SMOKING CESSATION THERAPY
     Dosage: 0.5 MG, 1X/DAY
     Route: 048
     Dates: start: 20130210
  2. RANITIDINE [Concomitant]
     Indication: GASTRIC DISORDER
     Dosage: UNK

REACTIONS (1)
  - Nausea [Not Recovered/Not Resolved]
